FAERS Safety Report 17858595 (Version 2)
Quarter: 2020Q2

REPORT INFORMATION
  Report Type: Report from Study
  Country: None (occurrence: US)
  Receive Date: 20200604
  Receipt Date: 20200605
  Transmission Date: 20200714
  Serious: No
  Sender: FDA-Public Use
  Company Number: US-US WORLDMEDS, LLC-USW201911-002152

PATIENT
  Age: 69 Year
  Sex: Female

DRUGS (7)
  1. XADAGO [Concomitant]
     Active Substance: SAFINAMIDE MESYLATE
  2. CLONAZEPAM. [Concomitant]
     Active Substance: CLONAZEPAM
  3. APOKYN [Suspect]
     Active Substance: APOMORPHINE HYDROCHLORIDE
     Route: 058
     Dates: end: 20191101
  4. APOKYN [Suspect]
     Active Substance: APOMORPHINE HYDROCHLORIDE
     Indication: PARKINSON^S DISEASE
     Dosage: UP TO 0.6 ML UNDER THE SKIN, DO NOT EXCEED THREE DOSES PER DAY
     Dates: start: 201905
  5. SYNTHROID [Concomitant]
     Active Substance: LEVOTHYROXINE SODIUM
  6. CARBIDOPA-LEVODOPA [Concomitant]
     Active Substance: CARBIDOPA\LEVODOPA
  7. OFLOXACIN. [Concomitant]
     Active Substance: OFLOXACIN

REACTIONS (1)
  - Rash pruritic [Recovered/Resolved]

NARRATIVE: CASE EVENT DATE: 20190515
